FAERS Safety Report 13310022 (Version 1)
Quarter: 2017Q1

REPORT INFORMATION
  Report Type: Spontaneous
  Country: US (occurrence: US)
  Receive Date: 20170308
  Receipt Date: 20170308
  Transmission Date: 20170428
  Serious: No
  Sender: FDA-Public Use
  Company Number: None

PATIENT
  Sex: Female

DRUGS (1)
  1. NINLARO [Suspect]
     Active Substance: IXAZOMIB
     Indication: PLASMA CELL MYELOMA
     Dosage: ONCE WEEKLY FOR 3 WEEKS THEN OFF FOR 1 WEEK THEN REPEAT
     Route: 048
     Dates: start: 20161101

REACTIONS (1)
  - Therapy cessation [None]
